FAERS Safety Report 4640179-X (Version None)
Quarter: 2005Q2

REPORT INFORMATION
  Report Type: 
  Country: None (occurrence: None)
  Receive Date: 20050419
  Receipt Date: 20050412
  Transmission Date: 20051028
  Serious: Yes (Other)
  Sender: FDA-Public Use
  Company Number: USA-2005-0019111

PATIENT
  Age: 48 Year
  Sex: Male
  Weight: 78.5 kg

DRUGS (1)
  1. OXYCONTIN [Suspect]
     Indication: PAIN
     Dosage: 240 MG, DAILY, UNK
     Dates: start: 20021119, end: 20041222

REACTIONS (2)
  - DEAFNESS TRANSITORY [None]
  - TINNITUS [None]
